FAERS Safety Report 21566958 (Version 1)
Quarter: 2022Q4

REPORT INFORMATION
  Report Type: Spontaneous
  Country: US (occurrence: US)
  Receive Date: 20221108
  Receipt Date: 20221108
  Transmission Date: 20230113
  Serious: Yes (Life-Threatening, Hospitalization, Other)
  Sender: FDA-Public Use
  Company Number: US-LUPIN PHARMACEUTICALS INC.-2022-13086

PATIENT
  Age: 17 Year
  Sex: Female
  Weight: 61.4 kg

DRUGS (1)
  1. AMLODIPINE [Suspect]
     Active Substance: AMLODIPINE BESYLATE
     Indication: Product used for unknown indication
     Dosage: UNK
     Route: 048

REACTIONS (8)
  - Hypotension [Unknown]
  - Lactic acidosis [Unknown]
  - Acute kidney injury [Unknown]
  - Cardiac arrest [Unknown]
  - Neuropsychological test abnormal [Unknown]
  - Suicide attempt [Unknown]
  - Toxicity to various agents [Unknown]
  - Overdose [Unknown]
